FAERS Safety Report 8302005-7 (Version None)
Quarter: 2012Q2

REPORT INFORMATION
  Report Type: 
  Country: None (occurrence: None)
  Receive Date: 20120420
  Receipt Date: 20120412
  Transmission Date: 20120825
  Serious: Yes (Hospitalization)
  Sender: FDA-Public Use
  Company Number: FR-ROCHE-1055523

PATIENT
  Sex: Female
  Weight: 67 kg

DRUGS (8)
  1. CHLORAMBUCIL [Suspect]
     Indication: CHRONIC LYMPHOCYTIC LEUKAEMIA
     Route: 048
     Dates: start: 20111018
  2. LEVOFLOXACIN [Suspect]
     Indication: LUNG DISORDER
  3. MABTHERA [Suspect]
     Indication: CHRONIC LYMPHOCYTIC LEUKAEMIA
     Route: 042
     Dates: start: 20111018
  4. ALENDRONATE SODIUM [Concomitant]
     Dates: start: 20000101
  5. CHONDROSULF [Concomitant]
     Dates: start: 20000101
  6. CELECTOL [Concomitant]
     Dates: start: 20000101
  7. VOLTARENE (FRANCE) [Concomitant]
     Dates: start: 20000101
  8. ROCEPHIN [Suspect]
     Indication: LUNG DISORDER

REACTIONS (2)
  - ENCEPHALOPATHY [None]
  - LUNG DISORDER [None]
